FAERS Safety Report 5707311-8 (Version None)
Quarter: 2008Q2

REPORT INFORMATION
  Report Type: 
  Country: None (occurrence: None)
  Receive Date: 20080416
  Receipt Date: 20080404
  Transmission Date: 20081010
  Serious: Yes (Other)
  Sender: FDA-Public Use
  Company Number: US-WYE-H03463408

PATIENT
  Age: 60 Year
  Sex: Female
  Weight: 54.48 kg

DRUGS (10)
  1. EFFEXOR XR [Suspect]
     Indication: DEPRESSION
     Dosage: UNKNOWN
     Route: 048
     Dates: start: 20020101
  2. EFFEXOR XR [Suspect]
     Route: 048
     Dates: end: 20070101
  3. EFFEXOR XR [Suspect]
     Dosage: OVER THE PAST YEAR TRYING TO GET OFF, UNKNOWN DOSES
     Route: 048
     Dates: start: 20070101
  4. EFFEXOR XR [Suspect]
     Route: 048
  5. EFFEXOR XR [Suspect]
     Route: 048
  6. EFFEXOR XR [Suspect]
     Route: 048
  7. EFFEXOR XR [Suspect]
     Route: 048
     Dates: start: 20080101
  8. AMLODIPINE [Concomitant]
     Dosage: 2 MG, FREQUENCY UNKNOWN
  9. WELCHOL [Concomitant]
     Dosage: UNKNOWN
  10. ZETIA [Concomitant]
     Dosage: 10 MG, FREQUENCY UNKNOWN

REACTIONS (8)
  - ACTIVITIES OF DAILY LIVING IMPAIRED [None]
  - DRUG WITHDRAWAL SYNDROME [None]
  - FATIGUE [None]
  - FEELING COLD [None]
  - FEELING HOT [None]
  - MALAISE [None]
  - SENSORY DISTURBANCE [None]
  - UNEVALUABLE EVENT [None]
